FAERS Safety Report 9531305 (Version 1)
Quarter: 2013Q3

REPORT INFORMATION
  Report Type: Spontaneous
  Country: US (occurrence: None)
  Receive Date: 20130916
  Receipt Date: 20130916
  Transmission Date: 20140515
  Serious: Yes (Other)
  Sender: FDA-Public Use
  Company Number: None

PATIENT
  Age: 66 Year
  Sex: Female

DRUGS (1)
  1. ZPACK [Suspect]
     Indication: INFLUENZA LIKE ILLNESS
     Dates: start: 20121231, end: 20130105

REACTIONS (6)
  - Fatigue [None]
  - Dyspnoea exertional [None]
  - Abasia [None]
  - Arrhythmia [None]
  - Chest pain [None]
  - Heart rate irregular [None]
